FAERS Safety Report 6386369-X (Version None)
Quarter: 2009Q3

REPORT INFORMATION
  Report Type: 
  Country: None (occurrence: None)
  Receive Date: 20090930
  Receipt Date: 20090930
  Transmission Date: 20100115
  Serious: No
  Sender: FDA-Public Use
  Company Number: None

PATIENT
  Sex: Male
  Weight: 2.845 kg

DRUGS (2)
  1. GENTAK [Suspect]
     Indication: OPHTHALMIA NEONATORUM
     Dosage: 1 APPLICATION ONCE OPHTHALMIC
     Route: 047
     Dates: start: 20090925, end: 20090925
  2. GENTAK [Suspect]
     Indication: PROPHYLAXIS
     Dosage: 1 APPLICATION ONCE OPHTHALMIC
     Route: 047
     Dates: start: 20090925, end: 20090925

REACTIONS (1)
  - SKIN REACTION [None]
